FAERS Safety Report 21976054 (Version 1)
Quarter: 2023Q1

REPORT INFORMATION
  Report Type: Spontaneous
  Country: US (occurrence: US)
  Receive Date: 20230210
  Receipt Date: 20230210
  Transmission Date: 20230418
  Serious: No
  Sender: FDA-Public Use
  Company Number: US-ELI_LILLY_AND_COMPANY-US202301012764

PATIENT
  Age: 58 Year
  Sex: Female

DRUGS (1)
  1. MOUNJARO [Suspect]
     Active Substance: TIRZEPATIDE
     Indication: Product used for unknown indication
     Dosage: 2.5 MG, UNKNOWN
     Route: 058
     Dates: start: 20230124

REACTIONS (4)
  - Injection site swelling [Unknown]
  - Injection site hypoaesthesia [Unknown]
  - Injection site haemorrhage [Unknown]
  - Injury associated with device [Unknown]

NARRATIVE: CASE EVENT DATE: 20230124
